FAERS Safety Report 17604692 (Version 1)
Quarter: 2020Q1

REPORT INFORMATION
  Report Type: Spontaneous
  Country: US (occurrence: US)
  Receive Date: 20200331
  Receipt Date: 20200331
  Transmission Date: 20200409
  Serious: No
  Sender: FDA-Public Use
  Company Number: US-PFIZER INC-2020131921

PATIENT
  Age: 89 Year
  Sex: Female
  Weight: 68.4 kg

DRUGS (1)
  1. PREMARIN [Suspect]
     Active Substance: ESTROGENS, CONJUGATED
     Indication: HOT FLUSH
     Dosage: 0.45 MG, DAILY (1 TABLET BY MOUTH DAILY)
     Route: 048

REACTIONS (2)
  - Insomnia [Unknown]
  - Body height decreased [Unknown]

NARRATIVE: CASE EVENT DATE: 202003
